FAERS Safety Report 8187345-7 (Version None)
Quarter: 2012Q1

REPORT INFORMATION
  Report Type: 
  Country: None (occurrence: None)
  Receive Date: 20120306
  Receipt Date: 20120227
  Transmission Date: 20120608
  Serious: Yes (Other)
  Sender: FDA-Public Use
  Company Number: CA-JNJFOC-20120214312

PATIENT
  Sex: Female
  Weight: 70 kg

DRUGS (8)
  1. DYAZIDE [Concomitant]
     Route: 065
  2. FOSAMAX [Concomitant]
     Route: 065
  3. METHOTREXATE [Concomitant]
     Route: 058
  4. RAMIPRIL [Concomitant]
     Route: 065
  5. REMICADE [Suspect]
     Indication: RHEUMATOID ARTHRITIS
     Route: 042
     Dates: start: 20050401
  6. METOPROLOL SUCCINATE [Concomitant]
     Route: 065
  7. PREDNISONE TAB [Concomitant]
     Route: 065
  8. VITAMIN D [Concomitant]
     Route: 065

REACTIONS (3)
  - BACK PAIN [None]
  - PAIN IN EXTREMITY [None]
  - SURGERY [None]
